FAERS Safety Report 4303940-7 (Version None)
Quarter: 2004Q1

REPORT INFORMATION
  Report Type: 
  Country: None (occurrence: None)
  Receive Date: 20040223
  Receipt Date: 20031202
  Transmission Date: 20041129
  Serious: No
  Sender: FDA-Public Use
  Company Number: PHEH2003US10981

PATIENT
  Age: 60 Year
  Sex: Female

DRUGS (1)
  1. ZELNORM [Suspect]
     Indication: IRRITABLE BOWEL SYNDROME
     Dosage: 2MG,BID, ORAL
     Route: 048
     Dates: start: 20030601

REACTIONS (4)
  - APHTHOUS STOMATITIS [None]
  - OEDEMA MOUTH [None]
  - SWOLLEN TONGUE [None]
  - TONGUE DRY [None]
